FAERS Safety Report 6605098-8 (Version None)
Quarter: 2010Q1

REPORT INFORMATION
  Report Type: 
  Country: None (occurrence: None)
  Receive Date: 20100226
  Receipt Date: 20100218
  Transmission Date: 20100710
  Serious: Yes (Death, Other)
  Sender: FDA-Public Use
  Company Number: TR-ELI_LILLY_AND_COMPANY-TR201002005405

PATIENT
  Age: 62 Year
  Sex: Female

DRUGS (6)
  1. HUMULIN 70/30 [Suspect]
     Indication: DIABETES MELLITUS
     Dosage: 20 IU, EACH MORNING
     Route: 058
     Dates: start: 19900106
  2. HUMULIN 70/30 [Suspect]
     Dosage: 15 IU, EACH EVENING
     Route: 058
     Dates: start: 19900106, end: 20090909
  3. PLAVIX [Concomitant]
     Dosage: UNK, DAILY (1/D)
  4. ISORDIL [Concomitant]
  5. CORDARONE [Concomitant]
     Indication: CARDIAC DISORDER
     Dosage: 5 MG, UNK
  6. ACETYLSALICYLIC ACID [Concomitant]
     Dosage: 300 MG, DAILY (1/D)
     Dates: start: 20000210, end: 20090909

REACTIONS (1)
  - CARDIAC FAILURE [None]
